FAERS Safety Report 8117726-9 (Version None)
Quarter: 2011Q4

REPORT INFORMATION
  Report Type: 
  Country: None (occurrence: None)
  Receive Date: 20111227
  Receipt Date: 20101228
  Transmission Date: 20120403
  Serious: Yes (Other)
  Sender: FDA-Public Use
  Company Number: PHHY2010US89015

PATIENT
  Age: 71 Year
  Sex: Female

DRUGS (5)
  1. FEMARA [Suspect]
     Dosage: 2.5 MG, QD, ORAL
     Route: 048
  2. SIMVASTATIN [Concomitant]
  3. SYNTHROID [Concomitant]
  4. CALCIUM CARBONATE [Concomitant]
  5. VITAMINS (NO INGREDIENTS/SUBSTANCES) [Concomitant]

REACTIONS (1)
  - DIZZINESS [None]
